FAERS Safety Report 15476174 (Version 3)
Quarter: 2020Q2

REPORT INFORMATION
  Report Type: Spontaneous
  Country: CA (occurrence: CA)
  Receive Date: 20181009
  Receipt Date: 20200420
  Transmission Date: 20200713
  Serious: Yes (Death, Hospitalization, Other)
  Sender: FDA-Public Use
  Company Number: CA-009507513-1810CAN002049

PATIENT
  Age: 76 Year
  Sex: Male
  Weight: 89 kg

DRUGS (7)
  1. MULTIVITE [Concomitant]
     Active Substance: VITAMINS
     Dosage: UNK, QD
     Route: 048
  2. GABAPENTIN. [Concomitant]
     Active Substance: GABAPENTIN
     Dosage: 100 MILLIGRAM, TID
     Route: 048
  3. VITAMIN D (UNSPECIFIED) [Concomitant]
     Active Substance: VITAMIN D NOS
     Dosage: 1000 INTERNATIONAL UNIT, QD
     Route: 048
  4. MORPHINE [Concomitant]
     Active Substance: MORPHINE
     Dosage: 15 MILLIGRAM, BID
     Route: 048
  5. ACETAMINOPHEN (+) TRAMADOL HYDROCHLORIDE [Concomitant]
     Active Substance: ACETAMINOPHEN\TRAMADOL HYDROCHLORIDE
     Dosage: UNK, PRN
  6. KEYTRUDA [Suspect]
     Active Substance: PEMBROLIZUMAB
     Indication: NON-SMALL CELL LUNG CANCER
     Dosage: 180 MILLIGRAM, Q3W
     Route: 042
     Dates: start: 20180810, end: 20180907
  7. PIPERACILLIN AND TAZOBACTAM [Suspect]
     Active Substance: PIPERACILLIN SODIUM\TAZOBACTAM SODIUM
     Indication: PYREXIA
     Dosage: UNK
     Dates: start: 20180907

REACTIONS (6)
  - Hypovolaemia [Unknown]
  - Atrial fibrillation [Unknown]
  - Acute kidney injury [Unknown]
  - Haemoptysis [Fatal]
  - Respiratory failure [Fatal]
  - Pyrexia [Fatal]

NARRATIVE: CASE EVENT DATE: 2018
